FAERS Safety Report 5590597-0 (Version None)
Quarter: 2008Q1

REPORT INFORMATION
  Report Type: 
  Country: None (occurrence: None)
  Receive Date: 20080110
  Receipt Date: 20080102
  Transmission Date: 20080703
  Serious: Yes (Hospitalization)
  Sender: FDA-Public Use
  Company Number: CERZ-1000014

PATIENT
  Age: 9 Year
  Sex: Female
  Weight: 23.4 kg

DRUGS (2)
  1. CEREZYME [Suspect]
     Indication: GAUCHER'S DISEASE
     Dosage: 76.92 U/KG, Q2W, INTRAVENOUS
     Route: 042
     Dates: start: 20060517
  2. NAPROXEN [Concomitant]

REACTIONS (1)
  - BONE PAIN [None]
